FAERS Safety Report 9946369 (Version 1)
Quarter: 2014Q1

REPORT INFORMATION
  Report Type: Spontaneous
  Country: US (occurrence: US)
  Receive Date: 20140303
  Receipt Date: 20140303
  Transmission Date: 20141002
  Serious: No
  Sender: FDA-Public Use
  Company Number: US-AMGEN-USASP2013079724

PATIENT
  Age: 53 Year
  Sex: Female
  Weight: 131.52 kg

DRUGS (10)
  1. ENBREL [Suspect]
     Indication: RHEUMATOID ARTHRITIS
     Dosage: 50 MG, QWK
     Route: 058
  2. PLAQUENIL                          /00072603/ [Concomitant]
     Dosage: 200 MG, UNK
  3. HUMIRA [Concomitant]
     Dosage: 40 MG, UNK
  4. LYRICA [Concomitant]
     Dosage: 25 MG, UNK
  5. VITAMIN C                          /00008001/ [Concomitant]
     Dosage: 500 MG, UNK
  6. LOSARTAN POTASSIUM [Concomitant]
     Dosage: 25 MG, UNK
  7. MULTIVITAMINS, PLAIN [Concomitant]
     Dosage: UNK
  8. NEXIUM                             /01479302/ [Concomitant]
     Dosage: 20 MG, UNK
  9. METFORMIN [Concomitant]
     Dosage: 500 MG, UNK
  10. INDOMETHACIN                       /00003801/ [Concomitant]
     Dosage: 25 MG, UNK

REACTIONS (1)
  - Viral infection [Unknown]
